FAERS Safety Report 4428419-3 (Version None)
Quarter: 2004Q3

REPORT INFORMATION
  Report Type: 
  Country: None (occurrence: None)
  Receive Date: 20040816
  Receipt Date: 20040804
  Transmission Date: 20050211
  Serious: Yes (Hospitalization)
  Sender: FDA-Public Use
  Company Number: 2004052889

PATIENT
  Age: 62 Year
  Sex: Male

DRUGS (2)
  1. MICATIN [Suspect]
     Indication: TINEA PEDIS
     Dosage: UNSPECIFIED AMOUNT, TOPICAL
     Route: 061
     Dates: start: 20040701
  2. ASPIRIN [Concomitant]

REACTIONS (4)
  - DERMATITIS EXFOLIATIVE [None]
  - OEDEMA PERIPHERAL [None]
  - PAIN IN EXTREMITY [None]
  - PRURITUS [None]
